FAERS Safety Report 24764312 (Version 1)
Quarter: 2024Q4

REPORT INFORMATION
  Report Type: Spontaneous
  Country: CA (occurrence: CA)
  Receive Date: 20241223
  Receipt Date: 20241223
  Transmission Date: 20250115
  Serious: Yes (Other)
  Sender: TEVA
  Company Number: CA-TEVA-VS-3278638

PATIENT
  Age: 70 Year
  Sex: Female

DRUGS (1)
  1. BUPRENORPHINE HYDROCHLORIDE\NALOXONE HYDROCHLORIDE [Suspect]
     Active Substance: BUPRENORPHINE HYDROCHLORIDE\NALOXONE HYDROCHLORIDE
     Route: 065

REACTIONS (5)
  - Dizziness [Recovered/Resolved]
  - Cardiac flutter [Recovered/Resolved]
  - Presyncope [Recovered/Resolved]
  - Palpitations [Recovered/Resolved]
  - Drug intolerance [Recovered/Resolved]
